FAERS Safety Report 16368941 (Version 1)
Quarter: 2019Q2

REPORT INFORMATION
  Report Type: Spontaneous
  Country: BR (occurrence: BR)
  Receive Date: 20190529
  Receipt Date: 20190529
  Transmission Date: 20190711
  Serious: Yes (Other)
  Sender: FDA-Public Use
  Company Number: BR-ALLERGAN-1922420US

PATIENT

DRUGS (2)
  1. FLUOXETINE HCL UNK [Suspect]
     Active Substance: FLUOXETINE HYDROCHLORIDE
     Indication: EXPOSURE DURING PREGNANCY
     Dosage: 20 MG, QD
     Route: 064
  2. ACETYLSALICYLIC ACID [Suspect]
     Active Substance: ASPIRIN
     Indication: EXPOSURE DURING PREGNANCY
     Dosage: 100 MG, QD
     Route: 064

REACTIONS (2)
  - Cardiomegaly [Unknown]
  - Foetal exposure during pregnancy [Unknown]
